FAERS Safety Report 5737215-6 (Version None)
Quarter: 2008Q2

REPORT INFORMATION
  Report Type: 
  Country: None (occurrence: None)
  Receive Date: 20080514
  Receipt Date: 20080507
  Transmission Date: 20081010
  Serious: Yes (Hospitalization, Disabling, Other)
  Sender: FDA-Public Use
  Company Number: US-ALLERGAN-0805550US

PATIENT
  Sex: Female

DRUGS (5)
  1. BOTOX [Suspect]
     Indication: DRUG USE FOR UNKNOWN INDICATION
     Dosage: UNK, SINGLE
     Route: 030
     Dates: start: 20050101, end: 20050101
  2. BOTOX [Suspect]
     Dosage: UNK, SINGLE
     Route: 030
     Dates: start: 20040101, end: 20040101
  3. BOTOX [Suspect]
     Dosage: UNK, SINGLE
     Route: 030
  4. BOTOX [Suspect]
     Dosage: UNK, SINGLE
     Route: 030
  5. BOTOX [Suspect]
     Dosage: UNK, SINGLE
     Route: 030

REACTIONS (9)
  - DYSPNOEA [None]
  - FEAR [None]
  - INFECTION [None]
  - INSOMNIA [None]
  - MUSCULAR WEAKNESS [None]
  - PALPITATIONS [None]
  - PANIC ATTACK [None]
  - SENSORY DISTURBANCE [None]
  - TREMOR [None]
